FAERS Safety Report 12906135 (Version 1)
Quarter: 2016Q4

REPORT INFORMATION
  Report Type: Spontaneous
  Country: US (occurrence: US)
  Receive Date: 20161101
  Receipt Date: 20161101
  Transmission Date: 20170207
  Serious: Yes (Hospitalization, Other)
  Sender: FDA-Public Use
  Company Number: None

PATIENT
  Age: 58 Year
  Sex: Female

DRUGS (1)
  1. COPAXONE [Suspect]
     Active Substance: GLATIRAMER ACETATE
     Indication: MULTIPLE SCLEROSIS
     Route: 058
     Dates: start: 201608, end: 20161028

REACTIONS (7)
  - Product quality issue [None]
  - Chest pain [None]
  - Urticaria [None]
  - Malaise [None]
  - Dysstasia [None]
  - Nausea [None]
  - Eye pain [None]

NARRATIVE: CASE EVENT DATE: 20161028
